FAERS Safety Report 5884194-7 (Version None)
Quarter: 2008Q3

REPORT INFORMATION
  Report Type: 
  Country: None (occurrence: None)
  Receive Date: 20080911
  Receipt Date: 20080827
  Transmission Date: 20090109
  Serious: Yes (Death, Other)
  Sender: FDA-Public Use
  Company Number: 2008PV036608

PATIENT
  Age: 56 Year
  Sex: Female
  Weight: 68.0396 kg

DRUGS (6)
  1. SYMLIN [Suspect]
     Indication: TYPE 1 DIABETES MELLITUS
     Dosage: 45 MCG;TID;SC, 60 MCG;TID;SC, 45 MCG;TID;SC, 30 MCG;TID;SC, 15 MCG;TID;SC
     Route: 058
     Dates: start: 20080701, end: 20080701
  2. SYMLIN [Suspect]
     Indication: TYPE 1 DIABETES MELLITUS
     Dosage: 45 MCG;TID;SC, 60 MCG;TID;SC, 45 MCG;TID;SC, 30 MCG;TID;SC, 15 MCG;TID;SC
     Route: 058
     Dates: start: 20080720, end: 20080701
  3. SYMLIN [Suspect]
     Indication: TYPE 1 DIABETES MELLITUS
     Dosage: 45 MCG;TID;SC, 60 MCG;TID;SC, 45 MCG;TID;SC, 30 MCG;TID;SC, 15 MCG;TID;SC
     Route: 058
     Dates: start: 20080717, end: 20080719
  4. SYMLIN [Suspect]
     Indication: TYPE 1 DIABETES MELLITUS
     Dosage: 45 MCG;TID;SC, 60 MCG;TID;SC, 45 MCG;TID;SC, 30 MCG;TID;SC, 15 MCG;TID;SC
     Route: 058
     Dates: start: 20080701, end: 20080821
  5. SYMLIN [Suspect]
     Indication: TYPE 1 DIABETES MELLITUS
     Dosage: 45 MCG;TID;SC, 60 MCG;TID;SC, 45 MCG;TID;SC, 30 MCG;TID;SC, 15 MCG;TID;SC
     Route: 058
     Dates: start: 20080826, end: 20080901
  6. HUMALOG [Suspect]
     Indication: TYPE 1 DIABETES MELLITUS
     Dosage: ;SC
     Route: 058
     Dates: end: 20080903

REACTIONS (5)
  - BLOOD GLUCOSE DECREASED [None]
  - BLOOD GLUCOSE INCREASED [None]
  - CONFUSIONAL STATE [None]
  - EARLY SATIETY [None]
  - UNRESPONSIVE TO STIMULI [None]
